FAERS Safety Report 14924831 (Version 2)
Quarter: 2018Q2

REPORT INFORMATION
  Report Type: Report from Study
  Country: CA (occurrence: CA)
  Receive Date: 20180522
  Receipt Date: 20180621
  Transmission Date: 20180711
  Serious: Yes (Hospitalization, Other)
  Sender: FDA-Public Use
  Company Number: CA-B.I. PHARMACEUTICALS,INC./RIDGEFIELD-2017-BI-046994

PATIENT
  Age: 66 Year
  Sex: Male
  Weight: 83 kg

DRUGS (14)
  1. CHLORAX [Concomitant]
     Active Substance: CHLORDIAZEPOXIDE HYDROCHLORIDE\CLIDINIUM BROMIDE
     Indication: PRODUCT USED FOR UNKNOWN INDICATION
     Route: 065
  2. PRO METFORMIN [Concomitant]
     Indication: PRODUCT USED FOR UNKNOWN INDICATION
     Dosage: QTY: 90, PRESCRIBED ON: 01-MAR-2018, FILLED ON 12-MAY-2018, RR/RA: 12/12
     Route: 065
  3. SENOKOT [Concomitant]
     Active Substance: SENNOSIDES
     Indication: PRODUCT USED FOR UNKNOWN INDICATION
     Route: 065
  4. VALSARTAN. [Concomitant]
     Active Substance: VALSARTAN
     Indication: PRODUCT USED FOR UNKNOWN INDICATION
     Dosage: QTY: 30,PRESCRIBED ON: 01-MAR-2018. FILLED ON: 03-MAY-2018, RR/RA: 12/12
     Route: 065
  5. CITALOPRAM [Concomitant]
     Active Substance: CITALOPRAM HYDROBROMIDE
     Indication: PRODUCT USED FOR UNKNOWN INDICATION
     Dosage: QTY: 30, PRESCRIBED ON: 19-APR-2018, FILLED ON 24-APR-2018, RR/R: 12/12
     Route: 065
  6. SYNTHROID [Concomitant]
     Active Substance: LEVOTHYROXINE SODIUM
     Indication: PRODUCT USED FOR UNKNOWN INDICATION
     Dosage: QTY: 30, PRESCRIBED ON: 02-MAY-2018, FILLED ON: 21-APR-2018, RR/RA:3/12
     Route: 065
  7. OFEV [Suspect]
     Active Substance: NINTEDANIB
     Route: 048
  8. OFEV [Suspect]
     Active Substance: NINTEDANIB
     Dosage: TWICE A DAY AT BREAKFAST AND DINNER
     Route: 048
     Dates: start: 20180119, end: 20180510
  9. OFEV [Suspect]
     Active Substance: NINTEDANIB
     Indication: IDIOPATHIC PULMONARY FIBROSIS
     Route: 048
     Dates: start: 20170820, end: 20170912
  10. OFEV [Suspect]
     Active Substance: NINTEDANIB
     Dosage: QTY: 60, PRESCRIBED ON : 19-JAN-2018, FILLED ON : 10-MAY-2018, RA/RA:96/99, DURATION: 30 D
     Route: 048
     Dates: end: 20180516
  11. OFEV [Suspect]
     Active Substance: NINTEDANIB
     Dosage: QTY: 60, PRESCRIBED ON : 19-JAN-2018, FILLED ON : 10-MAY-2018, RA/RA:96/99, DURATION: 30 D
     Route: 048
     Dates: start: 201709
  12. PRO CIPROFLOXACIN [Concomitant]
     Indication: PRODUCT USED FOR UNKNOWN INDICATION
     Dosage: QTY: 28, PRESCRIBED ON: 01-MAY-2018, FILLED ON: 01-MAY-2018, RR/RA: 0/0
     Route: 048
  13. APO METRONIDAZOLE [Concomitant]
     Indication: PRODUCT USED FOR UNKNOWN INDICATION
     Dosage: QTY: 42 (FINISHED), PRESCRIBED ON: 01-MAY-2018, FILLED ON: 01-MAY-2018, RR/RA: 0/0
     Route: 065
  14. CRESTOR [Concomitant]
     Active Substance: ROSUVASTATIN CALCIUM
     Indication: PRODUCT USED FOR UNKNOWN INDICATION
     Dosage: QTY: 30, PRESCRIBED ON: 01-MAR-2018, FILLED ON: 21-APR-2018, RR/RA:12/12
     Route: 065

REACTIONS (18)
  - Pain in extremity [Not Recovered/Not Resolved]
  - Vomiting [Recovered/Resolved]
  - Enterovesical fistula [Unknown]
  - Malaise [Unknown]
  - Intestinal perforation [Unknown]
  - Diverticulum [Unknown]
  - Abdominal pain upper [Not Recovered/Not Resolved]
  - Constipation [Not Recovered/Not Resolved]
  - Hepatic enzyme increased [Recovered/Resolved]
  - Abdominal pain upper [Recovered/Resolved]
  - Myalgia [Not Recovered/Not Resolved]
  - Chills [Recovered/Resolved]
  - Flatulence [Not Recovered/Not Resolved]
  - Pyrexia [Unknown]
  - Intentional product misuse [Not Recovered/Not Resolved]
  - Urinary tract infection [Unknown]
  - Dyspnoea [Not Recovered/Not Resolved]
  - Bowel movement irregularity [Not Recovered/Not Resolved]

NARRATIVE: CASE EVENT DATE: 20170820
